FAERS Safety Report 9471956 (Version 1)
Quarter: 2013Q3

REPORT INFORMATION
  Report Type: Spontaneous
  Country: US (occurrence: US)
  Receive Date: 20130823
  Receipt Date: 20130823
  Transmission Date: 20140515
  Serious: Yes (Hospitalization)
  Sender: FDA-Public Use
  Company Number: US-BIOGENIDEC-2013BI078029

PATIENT
  Age: 66 Year
  Sex: Female

DRUGS (1)
  1. AVONEX [Suspect]
     Indication: MULTIPLE SCLEROSIS
     Route: 030
     Dates: start: 20111028

REACTIONS (5)
  - Lower respiratory tract infection [Unknown]
  - Urinary tract infection [Unknown]
  - Pneumonia [Unknown]
  - Ammonia increased [Unknown]
  - Feeling cold [Recovered/Resolved]
